FAERS Safety Report 7939403 (Version 2)
Quarter: 2013Q2

REPORT INFORMATION
  Report Type: Spontaneous
  Country: FR (occurrence: FR)
  Receive Date: 20110511
  Receipt Date: 20130625
  Transmission Date: 20140414
  Serious: Yes (Hospitalization)
  Sender: FDA-Public Use
  Company Number: FR-BIOGENIDEC-2011BI016979

PATIENT
  Age: 62 Year
  Sex: Female
  Weight: 55 kg

DRUGS (6)
  1. AVONEX [Suspect]
     Indication: MULTIPLE SCLEROSIS
     Route: 030
     Dates: start: 200310
  2. AVONEX [Suspect]
     Indication: MULTIPLE SCLEROSIS
     Route: 030
     Dates: start: 199809, end: 200310
  3. ZOLOFT [Concomitant]
     Indication: ANTIDEPRESSANT THERAPY
     Dates: start: 20111219
  4. XATRAL [Concomitant]
     Indication: BLADDER DISORDER
     Dates: start: 20050518
  5. TEGRETOL [Concomitant]
     Indication: GAIT DISTURBANCE
     Dates: start: 20000511
  6. LEXOMIL [Concomitant]
     Indication: ANXIETY
     Dates: start: 19960328

REACTIONS (1)
  - Gastrointestinal stromal tumour [Not Recovered/Not Resolved]
